FAERS Safety Report 7388203-8 (Version None)
Quarter: 2011Q1

REPORT INFORMATION
  Report Type: 
  Country: None (occurrence: None)
  Receive Date: 20110324
  Receipt Date: 20110314
  Transmission Date: 20110831
  Serious: Yes (Other)
  Sender: FDA-Public Use
  Company Number: 029369

PATIENT
  Age: 17 Year
  Sex: Male

DRUGS (8)
  1. DIAMOX /00016901/ [Concomitant]
  2. LAMICTAL [Concomitant]
  3. KEPPRA [Suspect]
     Indication: EPILEPSY
     Dosage: (500 MG BID ORAL), (2000 MG ORAL), (1000 MG ORAL)
     Route: 048
     Dates: start: 20110207, end: 20110220
  4. KEPPRA [Suspect]
     Indication: EPILEPSY
     Dosage: (500 MG BID ORAL), (2000 MG ORAL), (1000 MG ORAL)
     Route: 048
     Dates: start: 20110221, end: 20110222
  5. KEPPRA [Suspect]
     Indication: EPILEPSY
     Dosage: (500 MG BID ORAL), (2000 MG ORAL), (1000 MG ORAL)
     Route: 048
     Dates: start: 20110223, end: 20110228
  6. EXCEGRAN [Concomitant]
  7. RIVOTRIL [Concomitant]
  8. PHENOBAL /00023201/ [Concomitant]

REACTIONS (2)
  - MYOCLONUS [None]
  - DYSKINESIA [None]
